FAERS Safety Report 23270876 (Version 1)
Quarter: 2023Q4

REPORT INFORMATION
  Report Type: Spontaneous
  Country: GB (occurrence: GB)
  Receive Date: 20231207
  Receipt Date: 20231207
  Transmission Date: 20240110
  Serious: Yes (Death, Life-Threatening)
  Sender: FDA-Public Use
  Company Number: None

PATIENT
  Sex: Male

DRUGS (7)
  1. APIXABAN [Suspect]
     Active Substance: APIXABAN
     Indication: Atrial fibrillation
     Dosage: 2.5MG BD
  2. ALLOPURINOL [Concomitant]
     Active Substance: ALLOPURINOL
  3. BISOPROLOL [Concomitant]
     Active Substance: BISOPROLOL\BISOPROLOL FUMARATE
  4. GABAPENTIN [Concomitant]
     Active Substance: GABAPENTIN
  5. POLYETHYLENE GLYCOL 3350\POTASSIUM CHLORIDE\SODIUM BICARBONATE\SODIUM [Concomitant]
     Active Substance: POLYETHYLENE GLYCOL 3350\POTASSIUM CHLORIDE\SODIUM BICARBONATE\SODIUM CHLORIDE
  6. RAMIPRIL [Concomitant]
     Active Substance: RAMIPRIL
  7. TRAMADOL [Concomitant]
     Active Substance: TRAMADOL\TRAMADOL HYDROCHLORIDE

REACTIONS (4)
  - Haemorrhage intracranial [Fatal]
  - Unresponsive to stimuli [Fatal]
  - Depressed level of consciousness [Fatal]
  - Hypertension [Fatal]

NARRATIVE: CASE EVENT DATE: 20230924
